FAERS Safety Report 5008455-9 (Version None)
Quarter: 2006Q2

REPORT INFORMATION
  Report Type: 
  Country: None (occurrence: None)
  Receive Date: 20060518
  Receipt Date: 20060511
  Transmission Date: 20061013
  Serious: Yes (Hospitalization)
  Sender: FDA-Public Use
  Company Number: 0600237US

PATIENT
  Age: 40 Year
  Sex: Female
  Weight: 56 kg

DRUGS (1)
  1. DYSPORT (BOTULINUM TOXIN TYPE A) POWDER FOR INJECTION [Suspect]
     Indication: MUSCLE SPASTICITY
     Dosage: INTRAMUSCULAR
     Route: 030
     Dates: start: 20051201, end: 20060501

REACTIONS (1)
  - HYPOTONIA [None]
